FAERS Safety Report 17802156 (Version 4)
Quarter: 2020Q4

REPORT INFORMATION
  Report Type: Spontaneous
  Country: US (occurrence: US)
  Receive Date: 20200519
  Receipt Date: 20201130
  Transmission Date: 20210113
  Serious: No
  Sender: FDA-Public Use
  Company Number: US-PFIZER INC-2020197948

PATIENT
  Age: 76 Year
  Sex: Female

DRUGS (2)
  1. ENBREL [Concomitant]
     Active Substance: ETANERCEPT
     Dosage: UNK
  2. XELJANZ XR [Suspect]
     Active Substance: TOFACITINIB CITRATE
     Dosage: 11 MG, DAILY (1 TABLET DAILY)

REACTIONS (5)
  - Gait disturbance [Unknown]
  - Erythema [Unknown]
  - Suspected COVID-19 [Unknown]
  - Peripheral swelling [Unknown]
  - Pain in extremity [Unknown]
